FAERS Safety Report 9722847 (Version 1)
Quarter: 2013Q4

REPORT INFORMATION
  Report Type: Spontaneous
  Country: US (occurrence: None)
  Receive Date: 20131126
  Receipt Date: 20131126
  Transmission Date: 20140711
  Serious: Yes (Death)
  Sender: FDA-Public Use
  Company Number: B0946607A

PATIENT
  Sex: 0

DRUGS (6)
  1. MELPHALAN (FORMULATION UNKNOWN) (GENERIC) (MELPHALAN) [Suspect]
     Indication: HAEMATOLOGICAL MALIGNANCY
  2. MYCOPHENOLATE MOFETIL [Suspect]
  3. FLUDARABINE PHOSPHATE (FORMULATION UNKNOWN) (FLUDARABINE PHOSPHATE) [Suspect]
  4. THIOTEPA [Suspect]
  5. CYCLOPHOSPHAMIDE [Suspect]
     Indication: PROPHYLAXIS
  6. TACROLIMUS [Suspect]
     Indication: PROPHYLAXIS

REACTIONS (1)
  - Respiratory syncytial virus infection [None]
